FAERS Safety Report 5118804-9 (Version None)
Quarter: 2006Q4

REPORT INFORMATION
  Report Type: 
  Country: None (occurrence: None)
  Receive Date: 20061002
  Receipt Date: 20060822
  Transmission Date: 20070319
  Serious: Yes (Hospitalization, Other)
  Sender: FDA-Public Use
  Company Number: US-BRISTOL-MYERS SQUIBB COMPANY-13484514

PATIENT
  Age: 55 Year
  Sex: Female

DRUGS (2)
  1. ERBITUX [Suspect]
     Indication: COLON CANCER METASTATIC
     Route: 042
     Dates: start: 20060328, end: 20060802
  2. CPT-11 [Concomitant]

REACTIONS (3)
  - ARTHRALGIA [None]
  - INFLAMMATION [None]
  - LEUKOCYTOCLASTIC VASCULITIS [None]
